FAERS Safety Report 4428752-5 (Version None)
Quarter: 2004Q3

REPORT INFORMATION
  Report Type: 
  Country: None (occurrence: None)
  Receive Date: 20040818
  Receipt Date: 20040420
  Transmission Date: 20050211
  Serious: No
  Sender: FDA-Public Use
  Company Number: US-BRISTOL-MYERS SQUIBB COMPANY-12565909

PATIENT
  Age: 53 Year
  Sex: Female

DRUGS (2)
  1. TEQUIN [Suspect]
     Route: 048
     Dates: start: 20040412, end: 20040416
  2. TOPROL-XL [Concomitant]

REACTIONS (3)
  - PRURITUS [None]
  - RASH [None]
  - URTICARIA [None]
